FAERS Safety Report 6179314-3 (Version None)
Quarter: 2009Q2

REPORT INFORMATION
  Report Type: 
  Country: None (occurrence: None)
  Receive Date: 20090505
  Receipt Date: 20090428
  Transmission Date: 20091009
  Serious: Yes (Death, Life-Threatening, Hospitalization)
  Sender: FDA-Public Use
  Company Number: US-CELGENEUS-163-50794-09042506

PATIENT
  Sex: Male

DRUGS (4)
  1. VIDAZA [Suspect]
     Indication: MYELODYSPLASTIC SYNDROME
     Route: 051
     Dates: start: 20080715, end: 20080721
  2. VIDAZA [Suspect]
     Route: 058
     Dates: start: 20080107, end: 20080113
  3. CIPROFLOXACIN [Concomitant]
     Indication: SEPSIS
     Route: 051
     Dates: start: 20080907, end: 20080916
  4. VANCOMYCIN HCL [Concomitant]
     Indication: SEPSIS
     Route: 051
     Dates: start: 20080907, end: 20080916

REACTIONS (1)
  - SEPSIS [None]
